FAERS Safety Report 4314368-8 (Version None)
Quarter: 2004Q1

REPORT INFORMATION
  Report Type: 
  Country: None (occurrence: None)
  Receive Date: 20040308
  Receipt Date: 20040227
  Transmission Date: 20041129
  Serious: Yes (Hospitalization)
  Sender: FDA-Public Use
  Company Number: CIP04000413

PATIENT
  Age: 64 Year
  Sex: Female

DRUGS (5)
  1. ASACOL [Suspect]
     Indication: COLITIS ULCERATIVE
     Dosage: SEE IMAGE
     Route: 048
     Dates: start: 20030301, end: 20040201
  2. ASACOL [Suspect]
     Indication: COLITIS ULCERATIVE
     Dosage: SEE IMAGE
     Route: 048
     Dates: start: 20040201, end: 20040225
  3. ROWASA [Concomitant]
  4. FIBERCON (POLYCARBOPHIL CALCIUM) [Concomitant]
  5. .. [Suspect]

REACTIONS (5)
  - ARTHRALGIA [None]
  - BLOOD PRESSURE INCREASED [None]
  - HEADACHE [None]
  - HEART RATE INCREASED [None]
  - MYALGIA [None]
